FAERS Safety Report 14619332 (Version 1)
Quarter: 2018Q1

REPORT INFORMATION
  Report Type: Other
  Country: GR (occurrence: GR)
  Receive Date: 20180309
  Receipt Date: 20180309
  Transmission Date: 20180509
  Serious: Yes (Hospitalization)
  Sender: FDA-Public Use
  Company Number: GR-GLENMARK PHARMACEUTICALS-2016GMK033033

PATIENT

DRUGS (4)
  1. AMILORIDE W/FUROSEMIDE [Suspect]
     Active Substance: AMILORIDE\FUROSEMIDE
     Indication: CARDIAC FAILURE
     Dosage: 2 DF, UNK; 40 MG (FUROSEMIDE)+5 MG (AMILORIDE), BID
     Route: 065
  2. IRBESARTAN. [Suspect]
     Active Substance: IRBESARTAN
     Indication: CARDIAC FAILURE
     Dosage: 300 MG, QD
     Route: 065
  3. DICLOFENAC SODIUM. [Suspect]
     Active Substance: DICLOFENAC SODIUM
     Indication: CARDIAC FAILURE
     Dosage: UNK
     Route: 065
  4. CARVEDILOL. [Suspect]
     Active Substance: CARVEDILOL
     Indication: CARDIAC FAILURE
     Dosage: 6.25 MG, BID
     Route: 065

REACTIONS (11)
  - Blood sodium increased [Unknown]
  - Renal impairment [Unknown]
  - Electrocardiogram T wave abnormal [Unknown]
  - Product use in unapproved indication [Unknown]
  - Muscular weakness [Unknown]
  - Blood urea increased [Unknown]
  - Blood creatinine increased [Unknown]
  - Hyperkalaemia [Unknown]
  - Drug administration error [Unknown]
  - Orthostatic hypotension [Unknown]
  - Hyponatraemia [Unknown]
